FAERS Safety Report 24717067 (Version 1)
Quarter: 2024Q4

REPORT INFORMATION
  Report Type: Spontaneous
  Country: GB (occurrence: GB)
  Receive Date: 20241210
  Receipt Date: 20241210
  Transmission Date: 20250115
  Serious: Yes (Other)
  Sender: TEVA
  Company Number: GB-MHRA-TPP20637813C20568229YC1732875003990

PATIENT
  Age: 48 Year
  Sex: Male
  Weight: 88 kg

DRUGS (3)
  1. NAPROXEN [Suspect]
     Active Substance: NAPROXEN
     Indication: Ill-defined disorder
     Route: 065
     Dates: start: 20241007, end: 20241021
  2. BUTYLSCOPOLAMINE BROMIDE [Concomitant]
     Active Substance: BUTYLSCOPOLAMINE BROMIDE
     Indication: Ill-defined disorder
     Dosage: THREE TO FOUR TIMES A DAY
     Dates: start: 20241129
  3. OMEPRAZOLE [Concomitant]
     Active Substance: OMEPRAZOLE
     Indication: Ill-defined disorder
     Dosage: FOR A MONTH,
     Dates: start: 20241129

REACTIONS (1)
  - Gastrooesophageal reflux disease [Recovered/Resolved]
